FAERS Safety Report 24288014 (Version 2)
Quarter: 2024Q3

REPORT INFORMATION
  Report Type: Spontaneous
  Country: ES (occurrence: ES)
  Receive Date: 20240905
  Receipt Date: 20240923
  Transmission Date: 20241016
  Serious: Yes (Death, Hospitalization, Other)
  Sender: APELLIS PHARMACEUTICALS
  Company Number: ES-BIOVITRUM-2024-ES-010977

PATIENT

DRUGS (13)
  1. PEGCETACOPLAN [Suspect]
     Active Substance: PEGCETACOPLAN
     Indication: Paroxysmal nocturnal haemoglobinuria
     Dosage: 1080 MONDAY-THURSDAY?EAR DROPS, EMULSION
     Dates: start: 20240607, end: 20240813
  2. PLANTAGO MAJOR [Concomitant]
     Active Substance: PLANTAGO MAJOR
     Indication: Product used for unknown indication
     Dosage: MOUTHWASHES
     Route: 002
  3. LORAZEPAM [Concomitant]
     Active Substance: LORAZEPAM
     Indication: Product used for unknown indication
     Dosage: 1MG
     Route: 048
  4. NYSTATIN [Concomitant]
     Active Substance: NYSTATIN
     Indication: Product used for unknown indication
     Dosage: MOUTHWASHES
     Route: 002
  5. CLINDAMYCIN [Concomitant]
     Active Substance: CLINDAMYCIN
     Indication: Product used for unknown indication
     Dosage: 600 MG/4 ML
     Route: 042
  6. FUROSEMIDE [Concomitant]
     Active Substance: FUROSEMIDE
     Indication: Product used for unknown indication
     Dosage: 20 MG/2 ML
     Route: 042
  7. CEFTRIAXONE [Concomitant]
     Active Substance: CEFTRIAXONE\CEFTRIAXONE SODIUM
     Indication: Product used for unknown indication
     Dosage: 2G
     Route: 042
  8. TRAMADOL [Concomitant]
     Active Substance: TRAMADOL\TRAMADOL HYDROCHLORIDE
     Indication: Product used for unknown indication
     Dosage: 400 MG/100 ML
     Route: 042
  9. METAMIZOLE [Concomitant]
     Active Substance: METAMIZOLE
     Indication: Product used for unknown indication
     Dosage: 2 G/5 ML
     Route: 042
  10. FLUCONAZOLE [Concomitant]
     Active Substance: FLUCONAZOLE
     Indication: Product used for unknown indication
     Dosage: 200 MG/100 ML
     Route: 042
  11. LIDOCAINE [Concomitant]
     Active Substance: LIDOCAINE
     Indication: Product used for unknown indication
     Dosage: 2 PERCENT
     Route: 002
  12. DEXKETOPROFEN TROMETAMOL [Concomitant]
     Active Substance: DEXKETOPROFEN TROMETAMOL
     Indication: Product used for unknown indication
     Dosage: 50 MG/2 ML
     Route: 042
  13. ATORVASTATIN [Concomitant]
     Active Substance: ATORVASTATIN
     Indication: Product used for unknown indication
     Dosage: 40MG
     Route: 048

REACTIONS (12)
  - Pyrexia [Not Recovered/Not Resolved]
  - Stomatitis [Unknown]
  - Large intestinal ulcer [Unknown]
  - Cardiac failure [Not Recovered/Not Resolved]
  - Hypokalaemia [Unknown]
  - Acute pulmonary oedema [Not Recovered/Not Resolved]
  - Arrhythmia [Not Recovered/Not Resolved]
  - Cardiac arrest [Recovered/Resolved]
  - Aphthous ulcer [Not Recovered/Not Resolved]
  - Abscess [Fatal]
  - Infection [Fatal]
  - Prostatitis [Fatal]

NARRATIVE: CASE EVENT DATE: 20240101
